FAERS Safety Report 6713002-7 (Version None)
Quarter: 2010Q2

REPORT INFORMATION
  Report Type: 
  Country: None (occurrence: None)
  Receive Date: 20100430
  Receipt Date: 20100315
  Transmission Date: 20101027
  Serious: No
  Sender: FDA-Public Use
  Company Number: 2010UF0071

PATIENT
  Age: 8 Year
  Sex: Female

DRUGS (1)
  1. ULESFIA [Suspect]

REACTIONS (1)
  - RASH [None]
